FAERS Safety Report 9671413 (Version 1)
Quarter: 2013Q4

REPORT INFORMATION
  Report Type: Spontaneous
  Country: FR (occurrence: FR)
  Receive Date: 20131106
  Receipt Date: 20131106
  Transmission Date: 20140711
  Serious: Yes (Hospitalization, Other)
  Sender: FDA-Public Use
  Company Number: FR-PFIZER INC-2013314444

PATIENT
  Age: 68 Year
  Sex: Male

DRUGS (11)
  1. FUROSEMIDE [Suspect]
     Dosage: 40 MG, 1X/DAY
     Route: 048
     Dates: start: 201308, end: 20130925
  2. FUROSEMIDE [Suspect]
     Dosage: 125 MG, DAILY
     Dates: start: 20130930, end: 201310
  3. OMEPRAZOLE [Suspect]
     Dosage: 20 MG, 1X/DAY
     Route: 048
     Dates: start: 201211, end: 20130925
  4. ZOXAN [Suspect]
     Dosage: 8 MG, 1X/DAY
     Route: 048
     Dates: end: 20130919
  5. INNOVAIR [Suspect]
     Dosage: 2 PUFFS, DAILY
     Route: 055
  6. PLAVIX [Suspect]
     Dosage: 75 MG, 1X/DAY
     Route: 048
     Dates: end: 20130920
  7. LANTUS [Suspect]
     Dosage: 10 IU, 1X/DAY
     Route: 058
  8. HUMALOG [Suspect]
     Route: 058
  9. SPIRIVA [Suspect]
     Dosage: 1 DF, 1X/DAY
     Route: 055
  10. TRIVASTAL [Suspect]
     Dosage: 50 MG, 1X/DAY
     Route: 048
     Dates: end: 20130920
  11. KARDEGIC [Concomitant]
     Dosage: UNK
     Dates: end: 20130920

REACTIONS (3)
  - Tubulointerstitial nephritis [Not Recovered/Not Resolved]
  - Anaemia [Unknown]
  - Dyspnoea [Unknown]
